FAERS Safety Report 19787155 (Version 1)
Quarter: 2021Q3

REPORT INFORMATION
  Report Type: Report from Study
  Country: US (occurrence: US)
  Receive Date: 20210903
  Receipt Date: 20210903
  Transmission Date: 20211014
  Serious: Yes (Other)
  Sender: FDA-Public Use
  Company Number: US-ALLERGAN-2046123US

PATIENT
  Sex: Female

DRUGS (1)
  1. BIMATOPROST 0.1MG/ML SOL (9668X) [Suspect]
     Active Substance: BIMATOPROST
     Indication: PRODUCT USED FOR UNKNOWN INDICATION
     Dosage: 2 GTT, QHS

REACTIONS (7)
  - Product dose omission issue [Unknown]
  - Therapy interrupted [Unknown]
  - Visual impairment [Unknown]
  - Glaucoma [Unknown]
  - Malaise [Unknown]
  - Retinal artery occlusion [Unknown]
  - Vision blurred [Unknown]
